FAERS Safety Report 9157139 (Version 1)
Quarter: 2013Q1

REPORT INFORMATION
  Report Type: Spontaneous
  Country: US (occurrence: None)
  Receive Date: 20130212
  Receipt Date: 20130212
  Transmission Date: 20140127
  Serious: Yes (Other)
  Sender: FDA-Public Use
  Company Number: 2013SA008986

PATIENT
  Age: 59 Year
  Sex: Female

DRUGS (5)
  1. MENTHOL, ZINC OXIDE [Suspect]
     Indication: DRY SKIN
     Dates: start: 2011, end: 2011
  2. ANTIHYPERTENSIVES [Concomitant]
  3. ALL OTHER THERAPEUTIC PRODUCTS [Concomitant]
  4. LYRICA [Concomitant]
  5. OTHER HORMONES [Concomitant]

REACTIONS (5)
  - Application site nodule [None]
  - Blister [None]
  - Application site pain [None]
  - Application site erythema [None]
  - Drug ineffective [None]
